FAERS Safety Report 11062655 (Version 1)
Quarter: 2015Q2

REPORT INFORMATION
  Report Type: Spontaneous
  Country: US (occurrence: US)
  Receive Date: 20150424
  Receipt Date: 20150424
  Transmission Date: 20150821
  Serious: No
  Sender: FDA-Public Use
  Company Number: US-ALKERMES INC.-ALK-2014-002954

PATIENT

DRUGS (1)
  1. VIVITROL [Suspect]
     Active Substance: NALTREXONE
     Indication: PRODUCT USED FOR UNKNOWN INDICATION
     Dosage: 380 MG, UNK
     Route: 030
     Dates: start: 201403, end: 20140512

REACTIONS (3)
  - Back pain [Unknown]
  - Alopecia [Unknown]
  - Inflammation [Unknown]

NARRATIVE: CASE EVENT DATE: 201404
